FAERS Safety Report 22258483 (Version 2)
Quarter: 2023Q2

REPORT INFORMATION
  Report Type: Report from Study
  Country: MX (occurrence: MX)
  Receive Date: 20230427
  Receipt Date: 20230511
  Transmission Date: 20230722
  Serious: Yes (Other)
  Sender: FDA-Public Use
  Company Number: MX-002147023-NVSC2023MX095899

PATIENT
  Sex: Female
  Weight: 70 kg

DRUGS (1)
  1. HYDROCHLOROTHIAZIDE\VALSARTAN [Suspect]
     Active Substance: HYDROCHLOROTHIAZIDE\VALSARTAN
     Indication: Hypertension
     Dosage: 1 DOSAGE FORM, QD (80/12.5 MG) (STARTED 20 YEARS AGO, EXACT)
     Route: 048

REACTIONS (6)
  - Deafness [Unknown]
  - Ear disorder [Unknown]
  - Arthropathy [Unknown]
  - Visual impairment [Not Recovered/Not Resolved]
  - Balance disorder [Unknown]
  - Dizziness postural [Unknown]
